FAERS Safety Report 21708535 (Version 1)
Quarter: 2022Q4

REPORT INFORMATION
  Report Type: Spontaneous
  Country: FR (occurrence: FR)
  Receive Date: 20221210
  Receipt Date: 20221210
  Transmission Date: 20230113
  Serious: Yes (Other)
  Sender: FDA-Public Use
  Company Number: FR-AFSSAPS-SE20221250

PATIENT
  Age: 57 Year
  Sex: Female

DRUGS (8)
  1. ACETAMINOPHEN [Suspect]
     Active Substance: ACETAMINOPHEN
     Indication: General anaesthesia
     Dosage: 1 DOSAGE FORM
     Route: 042
     Dates: start: 20180830, end: 20180830
  2. TRACRIUM [Suspect]
     Active Substance: ATRACURIUM BESYLATE
     Indication: General anaesthesia
     Dosage: 1 DOSAGE FORM
     Route: 042
     Dates: start: 20180830, end: 20180830
  3. CEFAZOLIN SODIUM [Suspect]
     Active Substance: CEFAZOLIN SODIUM
     Indication: General anaesthesia
     Dosage: 1 DOSAGE FORM
     Route: 042
     Dates: start: 20180830, end: 20180830
  4. KETAMINE [Suspect]
     Active Substance: KETAMINE
     Indication: General anaesthesia
     Dosage: 1 DOSAGE FORM
     Route: 042
     Dates: start: 20180830, end: 20180830
  5. PROPOFOL [Suspect]
     Active Substance: PROPOFOL
     Indication: General anaesthesia
     Dosage: 1 DOSAGE FORM
     Route: 042
     Dates: start: 20180830, end: 20180830
  6. SUFENTA [Suspect]
     Active Substance: SUFENTANIL CITRATE
     Indication: General anaesthesia
     Dosage: 1 DOSAGE FORM
     Route: 042
     Dates: start: 20180830, end: 20180830
  7. KETOPROFEN [Suspect]
     Active Substance: KETOPROFEN
     Indication: General anaesthesia
     Dosage: 1 DOSAGE FORM
     Route: 042
     Dates: start: 20180830, end: 20180830
  8. DEXAMETHASONE [Suspect]
     Active Substance: DEXAMETHASONE
     Indication: General anaesthesia
     Dosage: 1 DOSAGE FORM
     Route: 042
     Dates: start: 20180830, end: 20180830

REACTIONS (2)
  - Type I hypersensitivity [Recovered/Resolved]
  - Allergy test negative [Recovered/Resolved]

NARRATIVE: CASE EVENT DATE: 20180830
